FAERS Safety Report 10553653 (Version 1)
Quarter: 2014Q4

REPORT INFORMATION
  Report Type: Spontaneous
  Country: US (occurrence: None)
  Receive Date: 20141023
  Receipt Date: 20141023
  Transmission Date: 20150529
  Serious: No
  Sender: FDA-Public Use
  Company Number: AP356-01189-SPO-US

PATIENT
  Age: 80 Year
  Sex: Female

DRUGS (5)
  1. VITAMIN D (ERGOCALCIFEROL) [Concomitant]
     Active Substance: ERGOCALCIFEROL
  2. ZETIA [Concomitant]
     Active Substance: EZETIMIBE
  3. METOPROLOL (METOPROLOL) [Concomitant]
     Active Substance: METOPROLOL
  4. LOSARTAN (LOSARTAN) [Concomitant]
     Active Substance: LOSARTAN
  5. BELVIQ [Suspect]
     Active Substance: LORCASERIN HYDROCHLORIDE
     Indication: WEIGHT CONTROL
     Route: 048
     Dates: start: 201407, end: 201407

REACTIONS (5)
  - Malaise [None]
  - Intentional underdose [None]
  - Chest discomfort [None]
  - Drug ineffective [None]
  - Heart rate increased [None]

NARRATIVE: CASE EVENT DATE: 201407
